FAERS Safety Report 4535506-8 (Version None)
Quarter: 2004Q4

REPORT INFORMATION
  Report Type: 
  Country: None (occurrence: None)
  Receive Date: 20041222
  Receipt Date: 20041215
  Transmission Date: 20050328
  Serious: Yes (Life-Threatening, Disabling)
  Sender: FDA-Public Use
  Company Number: US-MERCK-0412USA01937

PATIENT
  Age: 44 Year
  Sex: Male

DRUGS (15)
  1. CLARITIN-D [Concomitant]
     Route: 065
  2. VALIUM [Concomitant]
     Route: 065
  3. ZANTAC [Concomitant]
     Route: 065
  4. PATANOL [Concomitant]
     Route: 065
  5. CLONAZEPAM [Concomitant]
     Route: 065
  6. HYDROCORTISONE [Concomitant]
     Route: 065
  7. SEROQUEL [Concomitant]
     Route: 065
  8. [THERAPY UNSPECIFIED] [Concomitant]
     Route: 065
  9. [THERAPY UNSPECIFIED] [Concomitant]
     Route: 065
  10. ALBUTEROL [Concomitant]
     Route: 065
  11. VIOXX [Suspect]
     Indication: ARTHRITIS
     Route: 048
  12. VIOXX [Suspect]
     Route: 048
  13. SINGULAIR [Concomitant]
     Route: 065
  14. LORTAB [Concomitant]
     Route: 065
  15. SOMA [Concomitant]
     Route: 065

REACTIONS (7)
  - CHEST PAIN [None]
  - DYSPNOEA [None]
  - HEADACHE [None]
  - LOSS OF CONSCIOUSNESS [None]
  - PAIN IN EXTREMITY [None]
  - RENAL CYST [None]
  - RENAL IMPAIRMENT [None]
